FAERS Safety Report 10463082 (Version 2)
Quarter: 2014Q3

REPORT INFORMATION
  Report Type: Spontaneous
  Country: US (occurrence: US)
  Receive Date: 20140919
  Receipt Date: 20140919
  Transmission Date: 20150326
  Serious: Yes (Hospitalization, Other)
  Sender: FDA-Public Use
  Company Number: US-UNITED THERAPEUTICS-UNT-2014-005865

PATIENT
  Age: 56 Year
  Sex: Female
  Weight: 95.69 kg

DRUGS (2)
  1. COUMADIN [Concomitant]
     Active Substance: WARFARIN SODIUM
     Indication: PRODUCT USED FOR UNKNOWN INDICATION
  2. REMODULIN [Suspect]
     Active Substance: TREPROSTINIL
     Indication: PULMONARY ARTERIAL HYPERTENSION
     Dosage: 0.062 ?G/KG, CONTINUING
     Route: 058
     Dates: start: 20130919

REACTIONS (6)
  - Gastrointestinal viral infection [Unknown]
  - Drug dose omission [Unknown]
  - Vomiting [Unknown]
  - Dehydration [Unknown]
  - Bone cancer [Unknown]
  - Nausea [Unknown]

NARRATIVE: CASE EVENT DATE: 20140211
